FAERS Safety Report 7358550-4 (Version None)
Quarter: 2011Q1

REPORT INFORMATION
  Report Type: 
  Country: None (occurrence: None)
  Receive Date: 20110317
  Receipt Date: 20110308
  Transmission Date: 20110831
  Serious: Yes (Other)
  Sender: FDA-Public Use
  Company Number: GB-NOVOPROD-323472

PATIENT
  Age: 40 Year
  Sex: Female
  Weight: 125 kg

DRUGS (5)
  1. VICTOZA [Suspect]
     Indication: PRODUCT USED FOR UNKNOWN INDICATION
     Dosage: UNK
     Dates: start: 20110208
  2. METFORMIN HCL [Concomitant]
     Dosage: UNK
     Dates: start: 20101014
  3. RAMIPRIL [Concomitant]
     Dosage: UNK
     Dates: start: 20101014
  4. GLICLAZIDE [Concomitant]
     Dosage: UNK
     Dates: start: 20101014, end: 20110115
  5. AMOXICILLIN [Concomitant]
     Dosage: UNK
     Dates: start: 20101231, end: 20110105

REACTIONS (2)
  - INJECTION SITE RASH [None]
  - DERMATITIS ALLERGIC [None]
